FAERS Safety Report 14424205 (Version 3)
Quarter: 2018Q1

REPORT INFORMATION
  Report Type: Report from Study
  Country: US (occurrence: US)
  Receive Date: 20180123
  Receipt Date: 20180316
  Transmission Date: 20180509
  Serious: Yes (Hospitalization, Other)
  Sender: FDA-Public Use
  Company Number: US-ROCHE-2050612

PATIENT
  Age: 52 Year
  Sex: Female
  Weight: 57.25 kg

DRUGS (2)
  1. ERLOTINIB [Suspect]
     Active Substance: ERLOTINIB
     Indication: NON-SMALL CELL LUNG CANCER
     Route: 065
     Dates: start: 20160104
  2. BEVACIZUMAB. [Suspect]
     Active Substance: BEVACIZUMAB
     Indication: NON-SMALL CELL LUNG CANCER
     Dosage: LAST DOSE : 07/NOV/2017
     Route: 065
     Dates: start: 20160114

REACTIONS (6)
  - Cerebrospinal fluid leakage [Unknown]
  - Dizziness postural [Unknown]
  - Pain [Unknown]
  - Nervous system disorder [Unknown]
  - Intracranial hypotension [Recovering/Resolving]
  - Headache [Unknown]

NARRATIVE: CASE EVENT DATE: 20180102
